FAERS Safety Report 5846633-7 (Version None)
Quarter: 2008Q3

REPORT INFORMATION
  Report Type: 
  Country: None (occurrence: None)
  Receive Date: 20080815
  Receipt Date: 20080808
  Transmission Date: 20090109
  Serious: Yes (Hospitalization)
  Sender: FDA-Public Use
  Company Number: A0742714A

PATIENT
  Age: 52 Year
  Sex: Female

DRUGS (2)
  1. FLONASE [Suspect]
     Indication: SEASONAL ALLERGY
     Route: 045
  2. FLUTICASONE PROPIONATE [Suspect]
     Indication: SEASONAL ALLERGY
     Route: 045
     Dates: start: 20070101

REACTIONS (15)
  - COELIAC DISEASE [None]
  - DEHYDRATION [None]
  - FATIGUE [None]
  - FEELING ABNORMAL [None]
  - HEADACHE [None]
  - LYMPHADENITIS [None]
  - MALAISE [None]
  - NAUSEA [None]
  - OROPHARYNGEAL PAIN [None]
  - PYREXIA [None]
  - RHINALGIA [None]
  - THROAT IRRITATION [None]
  - VISION BLURRED [None]
  - VOMITING [None]
  - WHITE BLOOD CELL COUNT INCREASED [None]
